FAERS Safety Report 15204416 (Version 1)
Quarter: 2018Q3

REPORT INFORMATION
  Report Type: Spontaneous
  Country: FI (occurrence: FI)
  Receive Date: 20180726
  Receipt Date: 20180726
  Transmission Date: 20181010
  Serious: Yes (Other)
  Sender: FDA-Public Use
  Company Number: FI-TEVA-2018-FI-929843

PATIENT
  Age: 68 Year
  Sex: Male

DRUGS (6)
  1. PREDNISOLON [Concomitant]
     Active Substance: PREDNISOLONE
     Route: 048
  2. ACETYLSALICYLIC ACID [Concomitant]
     Active Substance: ASPIRIN
     Route: 048
  3. RAMIPRIL RATIOPHARM [Concomitant]
     Active Substance: RAMIPRIL
     Route: 048
  4. EMCONCOR CHF [Concomitant]
     Active Substance: BISOPROLOL FUMARATE
     Route: 048
  5. OMEPRAZOL RATIOPHARM [Suspect]
     Active Substance: OMEPRAZOLE
     Dosage: 40,MG,DAILY
     Route: 048
     Dates: start: 2017
  6. TAMSUMIN [Concomitant]
     Active Substance: TAMSULOSIN
     Dosage: 400,?G,DAILY
     Route: 048

REACTIONS (1)
  - Diarrhoea haemorrhagic [Recovered/Resolved]

NARRATIVE: CASE EVENT DATE: 20180422
